FAERS Safety Report 24060923 (Version 1)
Quarter: 2024Q3

REPORT INFORMATION
  Report Type: Spontaneous
  Country: GB (occurrence: GB)
  Receive Date: 20240708
  Receipt Date: 20240708
  Transmission Date: 20241016
  Serious: Yes (Hospitalization, Other)
  Sender: PFIZER
  Company Number: None

PATIENT
  Age: 10 Year
  Sex: Female
  Weight: 37 kg

DRUGS (1)
  1. NGENLA [Suspect]
     Active Substance: SOMATROGON-GHLA
     Indication: Growth hormone deficiency
     Dosage: 15 MG, WEEKLY
     Dates: start: 20230313, end: 20240703

REACTIONS (1)
  - Epiphysiolysis [Recovering/Resolving]

NARRATIVE: CASE EVENT DATE: 20240701
